FAERS Safety Report 8086780-5 (Version None)
Quarter: 2012Q1

REPORT INFORMATION
  Report Type: 
  Country: None (occurrence: None)
  Receive Date: 20120128
  Receipt Date: 20110518
  Transmission Date: 20120608
  Serious: Yes (Hospitalization)
  Sender: FDA-Public Use
  Company Number: US-ABBOTT-11P-163-0726839-00

PATIENT
  Sex: Female
  Weight: 51.756 kg

DRUGS (13)
  1. LEXAPRO [Concomitant]
     Indication: ANXIETY
     Dates: start: 20110501
  2. NEXIUM [Concomitant]
     Indication: PRODUCT USED FOR UNKNOWN INDICATION
     Dosage: IN A.M.
     Dates: start: 20110501
  3. IMODIUM [Concomitant]
     Indication: DIARRHOEA
  4. PREDNISONE TAB [Concomitant]
     Indication: CROHN'S DISEASE
     Dosage: TO TAPER BY 5 MG EACH WEEK
     Dates: start: 20110501
  5. POTASSIUM [Concomitant]
     Indication: BLOOD POTASSIUM DECREASED
     Dates: start: 20110501
  6. HUMIRA [Suspect]
     Indication: CROHN'S DISEASE
     Dosage: ONE OR TWO INJECTIONS WHILE IN HOSPITAL
     Dates: start: 20110512, end: 20110512
  7. CARVEDILOL [Concomitant]
     Indication: NEPHROLITHIASIS
  8. ASPIRIN [Concomitant]
     Indication: PRODUCT USED FOR UNKNOWN INDICATION
  9. FLAGYL [Concomitant]
     Indication: PRODUCT USED FOR UNKNOWN INDICATION
     Dates: start: 20110501
  10. HUMIRA [Suspect]
  11. FOLIC ACID [Concomitant]
     Indication: PRODUCT USED FOR UNKNOWN INDICATION
  12. CARVEDILOL [Concomitant]
     Indication: FLUID RETENTION
  13. HUMIRA [Suspect]
     Indication: CROHN'S DISEASE
     Dates: start: 20110428, end: 20110428

REACTIONS (10)
  - GASTROINTESTINAL DISORDER [None]
  - COLITIS [None]
  - PRURITUS [None]
  - BLOOD POTASSIUM DECREASED [None]
  - BLOOD MAGNESIUM DECREASED [None]
  - BLOOD PRESSURE INCREASED [None]
  - NAUSEA [None]
  - COUGH [None]
  - SHORT-BOWEL SYNDROME [None]
  - VOMITING [None]
